FAERS Safety Report 4657322-9 (Version None)
Quarter: 2005Q2

REPORT INFORMATION
  Report Type: 
  Country: None (occurrence: None)
  Receive Date: 20050408
  Receipt Date: 20041208
  Transmission Date: 20051028
  Serious: No
  Sender: FDA-Public Use
  Company Number: 235972K04USA

PATIENT
  Age: 40 Year
  Sex: Female

DRUGS (2)
  1. REBIF [Suspect]
     Indication: MULTIPLE SCLEROSIS
     Dosage: 11 MCG
     Dates: start: 20041101, end: 20041208
  2. REBIF [Suspect]
     Indication: MULTIPLE SCLEROSIS
     Dosage: 11 MCG
     Dates: start: 20041208

REACTIONS (3)
  - DIFFICULTY IN WALKING [None]
  - HEADACHE [None]
  - MUSCULOSKELETAL STIFFNESS [None]
